FAERS Safety Report 18895704 (Version 1)
Quarter: 2021Q1

REPORT INFORMATION
  Report Type: Spontaneous
  Country: IT (occurrence: IT)
  Receive Date: 20210215
  Receipt Date: 20210215
  Transmission Date: 20210420
  Serious: Yes (Other)
  Sender: FDA-Public Use
  Company Number: IT-BAUSCH-BL-2021-005444

PATIENT
  Age: 29 Year
  Sex: Female

DRUGS (3)
  1. NORMIX 200 MG [Suspect]
     Active Substance: RIFAXIMIN
     Indication: GASTROINTESTINAL BACTERIAL OVERGROWTH
     Dosage: 2 TABLETS 2 TIMES A DAILY
     Route: 048
     Dates: start: 20201224, end: 20201230
  2. PRIMOLUT NOR [Concomitant]
     Active Substance: NORETHINDRONE ACETATE
     Indication: ENDOMETRIOSIS
     Dosage: 2/4, 1/4 THEN 2/4
     Route: 065
  3. NORMIX 200 MG [Suspect]
     Active Substance: RIFAXIMIN
     Indication: INTENTIONAL PRODUCT USE ISSUE

REACTIONS (3)
  - Intentional product use issue [Unknown]
  - Haemorrhage [Not Recovered/Not Resolved]
  - Uterine spasm [Not Recovered/Not Resolved]
